FAERS Safety Report 11217499 (Version 1)
Quarter: 2015Q2

REPORT INFORMATION
  Report Type: Spontaneous
  Country: US (occurrence: None)
  Receive Date: 20150623
  Receipt Date: 20150623
  Transmission Date: 20150821
  Serious: Yes (Death)
  Sender: FDA-Public Use
  Company Number: 2015-US-000006

PATIENT
  Age: 3 Year
  Sex: Male

DRUGS (1)
  1. CHOLBAM [Suspect]
     Active Substance: CHOLIC ACID
     Dosage: 100 MG QAM AND 50 MG QPM
     Route: 048
     Dates: start: 20150409

REACTIONS (1)
  - Death [None]
